FAERS Safety Report 4360993-8 (Version None)
Quarter: 2004Q2

REPORT INFORMATION
  Report Type: 
  Country: None (occurrence: None)
  Receive Date: 20040517
  Receipt Date: 20040506
  Transmission Date: 20050107
  Serious: Yes (Hospitalization)
  Sender: FDA-Public Use
  Company Number: STA-AE-04-MTX-166

PATIENT
  Age: 67 Year
  Sex: Female

DRUGS (8)
  1. RHEUMATREX [Suspect]
     Indication: RHEUMATOID ARTHRITIS
     Dosage: 4 MG 1X PER 1 WK, ORAL
     Route: 048
     Dates: start: 20020902, end: 20020930
  2. PREDNISOLONE [Concomitant]
  3. FOSAMAX [Concomitant]
  4. ALFACALCIDOL (ALFACALCIDOL) [Concomitant]
  5. LOXONIN (LOXOPROFEN SODIUM) [Concomitant]
  6. CARFENIL (LOBENZARIT SODIUM) [Concomitant]
  7. NEUROTROPIN (ORGAN LYSATE, STANDARDIZED) [Concomitant]
  8. MARZULENE S (LEVOGLUTAMIDE/SODIUM GUALENATE) [Concomitant]

REACTIONS (7)
  - ARTHRITIS [None]
  - FACE OEDEMA [None]
  - HOARSENESS [None]
  - INSOMNIA [None]
  - INTERSTITIAL LUNG DISEASE [None]
  - MOVEMENT DISORDER [None]
  - PAIN [None]
